FAERS Safety Report 16986991 (Version 5)
Quarter: 2019Q4

REPORT INFORMATION
  Report Type: Spontaneous
  Country: US (occurrence: US)
  Receive Date: 20191102
  Receipt Date: 20191203
  Transmission Date: 20200122
  Serious: No
  Sender: FDA-Public Use
  Company Number: US-UNITED THERAPEUTICS-UNT-2019-017217

PATIENT
  Age: 47 Year
  Sex: Female
  Weight: 54.42 kg

DRUGS (12)
  1. ORENITRAM [Suspect]
     Active Substance: TREPROSTINIL
     Dosage: 0.125 MG, TID
     Route: 048
  2. ORENITRAM [Suspect]
     Active Substance: TREPROSTINIL
     Dosage: 0.675 MG, Q8H
     Route: 048
  3. ORENITRAM [Suspect]
     Active Substance: TREPROSTINIL
     Indication: PULMONARY ARTERIAL HYPERTENSION
     Dosage: UNK
     Route: 048
  4. ORENITRAM [Suspect]
     Active Substance: TREPROSTINIL
     Dosage: 0.375 MG, TID
     Route: 048
  5. NORCO [Suspect]
     Active Substance: ACETAMINOPHEN\HYDROCODONE BITARTRATE
     Indication: PRODUCT USED FOR UNKNOWN INDICATION
     Route: 065
  6. ORENITRAM [Suspect]
     Active Substance: TREPROSTINIL
     Dosage: 1 MG, Q8H
     Route: 048
  7. ORENITRAM [Suspect]
     Active Substance: TREPROSTINIL
     Indication: PULMONARY ARTERIAL HYPERTENSION
     Dosage: UNK
     Route: 048
  8. OPSUMIT [Concomitant]
     Active Substance: MACITENTAN
     Indication: PRODUCT USED FOR UNKNOWN INDICATION
     Dosage: UNK
     Route: 065
  9. ORENITRAM [Suspect]
     Active Substance: TREPROSTINIL
     Indication: PULMONARY ARTERIAL HYPERTENSION
     Dosage: 0.25 MG, TID
     Route: 048
     Dates: start: 20190926
  10. ORENITRAM [Suspect]
     Active Substance: TREPROSTINIL
     Dosage: 0.625 MG (TAKING TWO GREEN AND ONE WHITE)
     Route: 048
     Dates: start: 20191023
  11. SILDENAFIL CITRATE. [Concomitant]
     Active Substance: SILDENAFIL CITRATE
     Indication: PRODUCT USED FOR UNKNOWN INDICATION
     Dosage: UNK
     Route: 065
  12. ORENITRAM [Suspect]
     Active Substance: TREPROSTINIL
     Indication: PULMONARY ARTERIAL HYPERTENSION
     Dosage: UNK
     Route: 048

REACTIONS (3)
  - Headache [Unknown]
  - Diarrhoea [Not Recovered/Not Resolved]
  - Drug titration error [Unknown]

NARRATIVE: CASE EVENT DATE: 2019
